FAERS Safety Report 8909857 (Version 10)
Quarter: 2013Q4

REPORT INFORMATION
  Report Type: Report from Study
  Country: DE (occurrence: DE)
  Receive Date: 20121115
  Receipt Date: 20131221
  Transmission Date: 20140711
  Serious: Yes (Hospitalization, Other)
  Sender: FDA-Public Use
  Company Number: DE-UCBSA-069712

PATIENT
  Age: 65 Year
  Sex: Female
  Weight: 85 kg

DRUGS (19)
  1. CERTOLIZUMAB PEGOL [Suspect]
     Indication: RHEUMATOID ARTHRITIS
     Route: 058
     Dates: start: 20120821, end: 20120901
  2. CERTOLIZUMAB PEGOL [Suspect]
     Indication: RHEUMATOID ARTHRITIS
     Route: 058
     Dates: start: 20120910, end: 20121023
  3. CERTOLIZUMAB PEGOL [Suspect]
     Indication: RHEUMATOID ARTHRITIS
  4. PREDNISOLONE [Concomitant]
     Indication: POLYARTHRITIS
     Route: 048
     Dates: start: 20100712, end: 20120926
  5. PREDNISOLONE [Concomitant]
     Indication: POLYARTHRITIS
     Dosage: 20-0-5,PERI-OPERATIVELY MAINTAIN 15-0-5 MG, FURTHER DOSAGE DEPENDING ON THE COURSE
     Dates: start: 201210, end: 2012
  6. PREDNISOLONE [Concomitant]
     Indication: POLYARTHRITIS
     Dosage: 15 MG 1-0-0-0
     Dates: start: 2012, end: 2012
  7. PREDNISOLONE [Concomitant]
     Indication: POLYARTHRITIS
     Dosage: 5 MG
     Dates: start: 2012
  8. PREDNISOLONE [Concomitant]
     Indication: POLYARTHRITIS
     Dates: start: 20120727, end: 2012
  9. CELEBREX [Concomitant]
     Indication: POLYARTHRITIS
     Route: 048
     Dates: start: 20120116
  10. VALORON [Concomitant]
     Indication: POLYARTHRITIS
     Route: 048
  11. L-THYROXIN [Concomitant]
     Indication: HYPOTHYROIDISM
     Dosage: DAILY DOSE: 125 MCG
     Route: 048
  12. NEBILET [Concomitant]
     Indication: HYPERTENSION
     Dosage: DAILY DOSE: 2.5 MG
     Route: 048
  13. NOVALGIN [Concomitant]
     Indication: POLYARTHRITIS
     Route: 048
     Dates: start: 20120904
  14. NOVALGIN [Concomitant]
     Indication: POLYARTHRITIS
     Dosage: 500 MG
     Dates: start: 201212
  15. LEFLUNOMIDE [Concomitant]
     Indication: RHEUMATOID ARTHRITIS
     Dates: start: 201111, end: 201208
  16. HUMIRA [Concomitant]
     Indication: RHEUMATOID ARTHRITIS
     Dates: start: 201111, end: 201208
  17. PANTOPRAZOLE [Concomitant]
     Dosage: 0-0-40
     Dates: start: 2012
  18. PANTOPRAZOLE [Concomitant]
  19. VIGANTOLETTEN [Concomitant]
     Indication: VITAMIN D DEFICIENCY
     Dates: start: 20110530

REACTIONS (5)
  - Cardiovascular insufficiency [Not Recovered/Not Resolved]
  - Deep vein thrombosis [Recovered/Resolved]
  - Pneumonia [Recovered/Resolved]
  - Urinary tract infection [Recovered/Resolved]
  - Liver function test abnormal [Not Recovered/Not Resolved]
